FAERS Safety Report 14704300 (Version 1)
Quarter: 2018Q2

REPORT INFORMATION
  Report Type: Spontaneous
  Country: US (occurrence: US)
  Receive Date: 20180402
  Receipt Date: 20180402
  Transmission Date: 20180711
  Serious: No
  Sender: FDA-Public Use
  Company Number: US-ALLERGAN-1771849US

PATIENT
  Sex: Male

DRUGS (1)
  1. CANASA [Suspect]
     Active Substance: MESALAMINE
     Indication: CROHN^S DISEASE
     Dosage: 1000 MG, BID
     Route: 054

REACTIONS (5)
  - Pain [Unknown]
  - Inappropriate schedule of drug administration [Unknown]
  - Product physical issue [Unknown]
  - Off label use [Unknown]
  - Drug ineffective [Unknown]
